FAERS Safety Report 14652856 (Version 1)
Quarter: 2018Q1

REPORT INFORMATION
  Report Type: Report from Study
  Country: ZA (occurrence: ZA)
  Receive Date: 20180319
  Receipt Date: 20180319
  Transmission Date: 20180509
  Serious: Yes (Death, Life-Threatening, Hospitalization, Other)
  Sender: FDA-Public Use
  Company Number: ZA-AMGEN-ZAFSL2018036950

PATIENT
  Sex: Male

DRUGS (7)
  1. CARLOC [Concomitant]
     Active Substance: CARVEDILOL
  2. PHOSPHOSORB [Concomitant]
     Active Substance: CALCIUM ACETATE
  3. AMLOC [Concomitant]
  4. HUMULIN N [Concomitant]
     Active Substance: INSULIN HUMAN
  5. ARANESP [Suspect]
     Active Substance: DARBEPOETIN ALFA
     Indication: NEPHROGENIC ANAEMIA
     Dosage: 40 MUG, QWK
     Route: 058
     Dates: start: 201610, end: 201802
  6. LASIX [Concomitant]
     Active Substance: FUROSEMIDE
  7. ONE ALPHA [Concomitant]
     Active Substance: ALFACALCIDOL

REACTIONS (1)
  - Pleural effusion [Fatal]

NARRATIVE: CASE EVENT DATE: 201802
